FAERS Safety Report 5345859-9 (Version None)
Quarter: 2007Q2

REPORT INFORMATION
  Report Type: 
  Country: None (occurrence: None)
  Receive Date: 20070430
  Receipt Date: 20070306
  Transmission Date: 20071010
  Serious: No
  Sender: FDA-Public Use
  Company Number: 261378

PATIENT
  Age: 70 Year
  Sex: Male
  Weight: 113.4 kg

DRUGS (8)
  1. LEVEMIR [Suspect]
     Indication: DIABETES MELLITUS INSULIN-DEPENDENT
     Dosage: 20 LU, QD, SUBCUTANEOUS
     Route: 058
     Dates: start: 20070123
  2. ACTOS [Concomitant]
  3. GLYBURIDE [Concomitant]
  4. METFORMIN HCL [Concomitant]
  5. NOVO-GLYBURIDE [Concomitant]
  6. HYZAAR [Concomitant]
  7. ZOCOR [Concomitant]
  8. ASPIRIN [Concomitant]

REACTIONS (1)
  - BLOOD GLUCOSE INCREASED [None]
